FAERS Safety Report 14703274 (Version 4)
Quarter: 2018Q2

REPORT INFORMATION
  Report Type: Spontaneous
  Country: CA (occurrence: CA)
  Receive Date: 20180402
  Receipt Date: 20180611
  Transmission Date: 20180711
  Serious: Yes (Death, Hospitalization, Other)
  Sender: FDA-Public Use
  Company Number: CA-ALVOGEN-2018-ALVOGEN-095673

PATIENT
  Age: 51 Year
  Sex: Male

DRUGS (1)
  1. LISINOPRIL. [Suspect]
     Active Substance: LISINOPRIL
     Indication: PRODUCT USED FOR UNKNOWN INDICATION
     Dosage: UNKNOWN DOSE
     Route: 048

REACTIONS (6)
  - Drug hypersensitivity [Fatal]
  - Pneumonia [Unknown]
  - Myocardial infarction [Unknown]
  - Asthenia [Unknown]
  - Muscle atrophy [Not Recovered/Not Resolved]
  - Angioedema [Unknown]

NARRATIVE: CASE EVENT DATE: 201803
